FAERS Safety Report 9753872 (Version 1)
Quarter: 2013Q4

REPORT INFORMATION
  Report Type: Spontaneous
  Country: US (occurrence: US)
  Receive Date: 20131213
  Receipt Date: 20131213
  Transmission Date: 20140711
  Serious: No
  Sender: FDA-Public Use
  Company Number: US-GILEAD-2010-0027728

PATIENT
  Age: 58 Year
  Sex: Male

DRUGS (5)
  1. LETAIRIS [Suspect]
     Indication: PULMONARY ARTERIAL HYPERTENSION
     Route: 048
     Dates: start: 20100210
  2. XOPENEX HFA [Concomitant]
  3. ZOLOFT [Concomitant]
     Route: 048
  4. XANAX [Concomitant]
     Route: 048
  5. JANUVIA [Concomitant]
     Route: 048

REACTIONS (2)
  - Nausea [Recovering/Resolving]
  - Vomiting [Recovering/Resolving]
